FAERS Safety Report 4288200-5 (Version None)
Quarter: 2004Q1

REPORT INFORMATION
  Report Type: 
  Country: None (occurrence: None)
  Receive Date: 20040209
  Receipt Date: 20030904
  Transmission Date: 20041129
  Serious: No
  Sender: FDA-Public Use
  Company Number: US-GLAXOSMITHKLINE-A0424703A

PATIENT
  Sex: Female

DRUGS (10)
  1. PAXIL [Suspect]
     Indication: DEPRESSION
     Dosage: 60MG PER DAY
     Route: 048
  2. PAXIL [Suspect]
     Dosage: 50MG PER DAY
     Route: 048
  3. SEROQUEL [Concomitant]
  4. KLONOPIN [Concomitant]
  5. XANAX [Concomitant]
  6. ALLEGRA [Concomitant]
  7. IRON [Concomitant]
  8. ZANTAC [Concomitant]
  9. TYLENOL (CAPLET) [Concomitant]
  10. MULTIVITAMIN [Concomitant]

REACTIONS (2)
  - ANXIETY [None]
  - HYPERHIDROSIS [None]
